FAERS Safety Report 11460879 (Version 1)
Quarter: 2015Q3

REPORT INFORMATION
  Report Type: Spontaneous
  Country: TR (occurrence: TR)
  Receive Date: 20150904
  Receipt Date: 20150904
  Transmission Date: 20151125
  Serious: Yes (Hospitalization)
  Sender: FDA-Public Use
  Company Number: TR-PRINSTON PHARMACEUTICAL INC.-2015PRN00066

PATIENT
  Age: 56 Year
  Sex: Female

DRUGS (1)
  1. DONEPEZIL. [Suspect]
     Active Substance: DONEPEZIL
     Indication: DEMENTIA
     Route: 065

REACTIONS (7)
  - Blood pressure decreased [None]
  - Dizziness [None]
  - Presyncope [None]
  - Fatigue [None]
  - Hyperhidrosis [None]
  - Heart rate decreased [None]
  - Wandering pacemaker [Recovered/Resolved]
